FAERS Safety Report 12561846 (Version 1)
Quarter: 2016Q3

REPORT INFORMATION
  Report Type: Spontaneous
  Country: US (occurrence: US)
  Receive Date: 20160715
  Receipt Date: 20160715
  Transmission Date: 20161109
  Serious: Yes (Other)
  Sender: FDA-Public Use
  Company Number: US-TEVA-639378USA

PATIENT
  Sex: Male
  Weight: 87.17 kg

DRUGS (16)
  1. METFORMIN [Suspect]
     Active Substance: METFORMIN HYDROCHLORIDE
     Dates: start: 2015
  2. TUMERIC [Concomitant]
     Active Substance: TURMERIC
     Dates: start: 2014
  3. LIPITOR [Concomitant]
     Active Substance: ATORVASTATIN CALCIUM
     Dates: start: 2004
  4. ZOLOFT [Concomitant]
     Active Substance: SERTRALINE HYDROCHLORIDE
     Dates: start: 1999
  5. MUCINEX [Concomitant]
     Active Substance: GUAIFENESIN
     Dates: start: 2012
  6. GINGER ROOT [Concomitant]
     Active Substance: GINGER
     Dates: start: 2014
  7. FUROSEMIDE. [Suspect]
     Active Substance: FUROSEMIDE
     Indication: DIURETIC THERAPY
     Dosage: 40 MILLIGRAM DAILY;
     Route: 048
     Dates: start: 2007
  8. WARFARIN [Suspect]
     Active Substance: WARFARIN
     Dates: start: 2007
  9. LIDOCAINE. [Concomitant]
     Active Substance: LIDOCAINE
     Dates: start: 2014
  10. FISH OIL [Concomitant]
     Active Substance: FISH OIL
     Dates: start: 2007
  11. FLAXSEED [Concomitant]
     Active Substance: FLAX SEED
     Dates: start: 2015
  12. VITAMIN D3 [Concomitant]
     Active Substance: CHOLECALCIFEROL
     Dates: start: 2010
  13. COQ10 [Concomitant]
     Active Substance: UBIDECARENONE
     Dates: start: 2004
  14. TYLENOL [Concomitant]
     Active Substance: ACETAMINOPHEN
     Dates: start: 1985
  15. LOSARTAN. [Suspect]
     Active Substance: LOSARTAN
     Dates: start: 2007
  16. EPLERENONE. [Concomitant]
     Active Substance: EPLERENONE
     Dates: start: 2007

REACTIONS (5)
  - Pleural effusion [Not Recovered/Not Resolved]
  - Cardiac failure congestive [Not Recovered/Not Resolved]
  - Fluid retention [Not Recovered/Not Resolved]
  - Drug dose omission [Unknown]
  - Dyspnoea [Not Recovered/Not Resolved]
